FAERS Safety Report 10257766 (Version 2)
Quarter: 2014Q2

REPORT INFORMATION
  Report Type: Spontaneous
  Country: US (occurrence: US)
  Receive Date: 20140625
  Receipt Date: 20140625
  Transmission Date: 20141212
  Serious: Yes (Other)
  Sender: FDA-Public Use
  Company Number: US-AMGEN-USASP2014031434

PATIENT
  Age: 76 Year
  Sex: Male
  Weight: 175.4 kg

DRUGS (9)
  1. NPLATE [Suspect]
     Indication: IMMUNE THROMBOCYTOPENIC PURPURA
     Dosage: 1 MUG/KG, QWK
     Route: 058
     Dates: start: 20140214
  2. ATENOLOL [Concomitant]
     Dosage: 100 MG, QD
     Route: 048
     Dates: start: 20081111
  3. COZAAR [Concomitant]
     Dosage: 100 MG, (1/2 TABLET) UNK
     Route: 048
  4. METFORMIN HCL [Concomitant]
     Dosage: 1 UNK, BID
     Route: 048
     Dates: start: 20110629
  5. CONTOUR [Concomitant]
     Dosage: UNK
     Dates: start: 20140221
  6. OMEPRAZOLE                         /00661202/ [Concomitant]
     Dosage: 20 MG, UNK
     Route: 048
     Dates: start: 20120807
  7. IRON                               /00023503/ [Concomitant]
     Dosage: UNK
     Route: 048
     Dates: start: 20130408
  8. VITAMIN D3 [Concomitant]
     Dosage: 1000 UNIT, UNK
     Route: 048
     Dates: start: 20140214
  9. GLYBURIDE [Concomitant]
     Dosage: UNK (1/2 TAB)
     Route: 048
     Dates: start: 20140408

REACTIONS (16)
  - Haemorrhage intracranial [Unknown]
  - Abdominal abscess [Unknown]
  - Cholecystitis [Unknown]
  - Platelet count decreased [Unknown]
  - Deafness [Unknown]
  - Upper-airway cough syndrome [Unknown]
  - Renal mass [Unknown]
  - Dermatitis acneiform [Unknown]
  - Seborrhoeic keratosis [Unknown]
  - Hypercalcaemia [Unknown]
  - Fatigue [Recovering/Resolving]
  - Dyspnoea [Unknown]
  - Muscular weakness [Unknown]
  - Weight decreased [Unknown]
  - Leukocytosis [Unknown]
  - Oedema peripheral [Unknown]
